FAERS Safety Report 19470323 (Version 1)
Quarter: 2021Q2

REPORT INFORMATION
  Report Type: Spontaneous
  Country: US (occurrence: US)
  Receive Date: 20210629
  Receipt Date: 20210629
  Transmission Date: 20210717
  Serious: No
  Sender: FDA-Public Use
  Company Number: US-TARO-2020TAR01836

PATIENT

DRUGS (1)
  1. NORTRIPTYLINE HCL CAPSULES 10 MG [Suspect]
     Active Substance: NORTRIPTYLINE HYDROCHLORIDE
     Indication: NEURALGIA
     Dosage: 10 MILLIGRAM, QD, ONCE DAILY AT BEDTIME
     Route: 048
     Dates: start: 20201120

REACTIONS (13)
  - Muscle strain [Unknown]
  - Dry eye [Unknown]
  - Urine odour abnormal [Unknown]
  - Dysphagia [Not Recovered/Not Resolved]
  - Breast tenderness [Unknown]
  - Blepharospasm [Unknown]
  - Off label use [Not Recovered/Not Resolved]
  - Dizziness [Unknown]
  - Dry mouth [Unknown]
  - Constipation [Unknown]
  - Abdominal discomfort [Unknown]
  - Diarrhoea [Unknown]
  - Flushing [Unknown]

NARRATIVE: CASE EVENT DATE: 20201120
